FAERS Safety Report 24191114 (Version 1)
Quarter: 2024Q3

REPORT INFORMATION
  Report Type: Report from Study
  Country: BR (occurrence: BR)
  Receive Date: 20240808
  Receipt Date: 20240808
  Transmission Date: 20241017
  Serious: Yes (Other)
  Sender: MYLAN
  Company Number: BR-MYLANLABS-2024M1072998

PATIENT
  Sex: Male
  Weight: 73 kg

DRUGS (2)
  1. XALATAN [Suspect]
     Active Substance: LATANOPROST
     Indication: Glaucoma
     Dosage: 1 GTT DROPS
     Route: 047
     Dates: start: 2009
  2. XALATAN [Suspect]
     Active Substance: LATANOPROST
     Indication: Intraocular pressure increased

REACTIONS (1)
  - Cataract [Not Recovered/Not Resolved]
